FAERS Safety Report 7093775-7 (Version None)
Quarter: 2010Q4

REPORT INFORMATION
  Report Type: 
  Country: None (occurrence: None)
  Receive Date: 20101110
  Receipt Date: 20101101
  Transmission Date: 20110411
  Serious: Yes (Hospitalization)
  Sender: FDA-Public Use
  Company Number: FR-NOVOPROD-317769

PATIENT
  Age: 37 Year
  Sex: Female

DRUGS (2)
  1. NOVOSEVEN [Suspect]
     Indication: POSTPARTUM HAEMORRHAGE
     Dosage: 240 KIU (84 A?G/KG)
  2. NOVOSEVEN [Suspect]
     Dosage: 240 KIU (84 A?G/KG)

REACTIONS (3)
  - PERIPHERAL ISCHAEMIA [None]
  - PULMONARY EMBOLISM [None]
  - VENA CAVA THROMBOSIS [None]
